FAERS Safety Report 13528193 (Version 2)
Quarter: 2017Q2

REPORT INFORMATION
  Report Type: Report from Study
  Country: US (occurrence: US)
  Receive Date: 20170509
  Receipt Date: 20170605
  Transmission Date: 20170830
  Serious: Yes (Hospitalization)
  Sender: FDA-Public Use
  Company Number: US-BAYER-2017-078205

PATIENT
  Age: 43 Year
  Sex: Female

DRUGS (2)
  1. STIVARGA [Suspect]
     Active Substance: REGORAFENIB
     Indication: COLORECTAL CANCER
     Dosage: DAILY DOSE 120 MG ( 3 WEEKS ON AND 1 WEEK OFF)
     Route: 048
     Dates: start: 20170504
  2. STIVARGA [Suspect]
     Active Substance: REGORAFENIB
     Indication: COLORECTAL CANCER
     Dosage: 160 MG DAILY (3WEEKS ON AND 1 WEEK OFF)
     Route: 048
     Dates: start: 20170422, end: 20170424

REACTIONS (4)
  - Nausea [None]
  - Somnolence [None]
  - Dizziness [None]
  - Abdominal pain upper [None]

NARRATIVE: CASE EVENT DATE: 201704
